FAERS Safety Report 9210225 (Version 1)
Quarter: 2013Q2

REPORT INFORMATION
  Report Type: Report from Study
  Country: GB (occurrence: GB)
  Receive Date: 20130404
  Receipt Date: 20130404
  Transmission Date: 20140414
  Serious: Yes (Hospitalization)
  Sender: FDA-Public Use
  Company Number: GB-ROCHE-1208134

PATIENT
  Sex: Male

DRUGS (1)
  1. RITUXIMAB [Suspect]
     Indication: RHEUMATOID ARTHRITIS
     Dosage: LAST DOSE PRIOR TO SAE: 16/JUN/2012
     Route: 065
     Dates: start: 20090129

REACTIONS (3)
  - Upper respiratory tract infection [Unknown]
  - Swelling face [Unknown]
  - Local swelling [Unknown]
